FAERS Safety Report 6559891 (Version 3)
Quarter: 2017Q3

REPORT INFORMATION
  Report Type: Spontaneous
  Country: JP (occurrence: JP)
  Receive Date: 20080225
  Receipt Date: 20170921
  Transmission Date: 20171128
  Serious: Yes (Hospitalization, Other)
  Sender: FDA-Public Use
  Company Number: JP-RANBAXY-2008RR-13035

PATIENT
  Age: 51 Year
  Sex: Male

DRUGS (1)
  1. MINOCYCLINE [Suspect]
     Active Substance: MINOCYCLINE\MINOCYCLINE HYDROCHLORIDE
     Indication: URINARY TRACT INFECTION
     Dosage: 200 MG, DAILY
     Route: 048

REACTIONS (2)
  - Pleural effusion [Recovering/Resolving]
  - Pneumonitis [Recovering/Resolving]
